FAERS Safety Report 22902635 (Version 2)
Quarter: 2023Q4

REPORT INFORMATION
  Report Type: Report from Study
  Country: US (occurrence: None)
  Receive Date: 20230904
  Receipt Date: 20231010
  Transmission Date: 20240109
  Serious: Yes (Life-Threatening, Hospitalization, Other)
  Sender: FDA-Public Use
  Company Number: 2023A200099

PATIENT
  Age: 81 Year
  Sex: Female
  Weight: 83.5 kg

DRUGS (13)
  1. FARXIGA [Suspect]
     Active Substance: DAPAGLIFLOZIN PROPANEDIOL
     Indication: Diabetes mellitus
     Dosage: 5.0MG UNKNOWN
     Route: 048
     Dates: start: 20230724, end: 20230819
  2. TYLENOL [Concomitant]
     Active Substance: ACETAMINOPHEN
     Indication: Pain
     Route: 048
     Dates: start: 20230427
  3. HYGROTON [Concomitant]
     Active Substance: CHLORTHALIDONE
     Dates: start: 20230311
  4. CHOLECALCIFEROL [Concomitant]
     Active Substance: CHOLECALCIFEROL
     Dates: start: 20230508
  5. ZETIA [Concomitant]
     Active Substance: EZETIMIBE
     Dates: start: 20230317
  6. ALLEGRA [Concomitant]
     Active Substance: FEXOFENADINE HYDROCHLORIDE
     Dates: start: 20230323
  7. TAMBOCOR [Concomitant]
     Active Substance: FLECAINIDE ACETATE
     Dates: start: 20210323
  8. LASIX [Concomitant]
     Active Substance: FUROSEMIDE
     Dates: start: 20210321
  9. GLUCOTROL XL [Concomitant]
     Active Substance: GLIPIZIDE
     Dates: start: 20230420
  10. TOPROL XL [Concomitant]
     Active Substance: METOPROLOL SUCCINATE
     Dates: start: 20220622
  11. SINGULAIR [Concomitant]
     Active Substance: MONTELUKAST SODIUM
     Dates: start: 20230419
  12. ZOFRAN [Concomitant]
     Active Substance: ONDANSETRON HYDROCHLORIDE
     Dates: start: 20210321
  13. PROTONIX [Concomitant]
     Active Substance: PANTOPRAZOLE SODIUM
     Dates: start: 20160413

REACTIONS (10)
  - Constipation [Not Recovered/Not Resolved]
  - Nausea [Not Recovered/Not Resolved]
  - Vulvovaginal pruritus [Not Recovered/Not Resolved]
  - Drug hypersensitivity [Not Recovered/Not Resolved]
  - Rash [Not Recovered/Not Resolved]
  - Rash maculo-papular [Unknown]
  - Pruritus [Not Recovered/Not Resolved]
  - Malaise [Not Recovered/Not Resolved]
  - Abdominal discomfort [Not Recovered/Not Resolved]
  - Cough [Unknown]
